FAERS Safety Report 14877480 (Version 1)
Quarter: 2018Q2

REPORT INFORMATION
  Report Type: Report from Study
  Country: IE (occurrence: IE)
  Receive Date: 20180510
  Receipt Date: 20180510
  Transmission Date: 20180711
  Serious: Yes (Other)
  Sender: FDA-Public Use
  Company Number: IE-CANTON LABORATORIES, LLC-2047583

PATIENT
  Age: 14 Year
  Sex: Female

DRUGS (1)
  1. NAPROSYN [Suspect]
     Active Substance: NAPROXEN
     Indication: PRODUCT USED FOR UNKNOWN INDICATION
     Route: 065

REACTIONS (5)
  - Laboratory test interference [Unknown]
  - Encephalopathy [Unknown]
  - Toxicity to various agents [Unknown]
  - Acute kidney injury [Unknown]
  - Metabolic acidosis [Unknown]
